FAERS Safety Report 23057616 (Version 2)
Quarter: 2025Q4

REPORT INFORMATION
  Report Type: Spontaneous
  Country: CA (occurrence: CA)
  Receive Date: 20231012
  Receipt Date: 20251120
  Transmission Date: 20260118
  Serious: Yes (Other)
  Sender: ROCHE
  Company Number: CA-ROCHE-3436161

PATIENT
  Age: 81 Year
  Sex: Female

DRUGS (14)
  1. RITUXIMAB [Suspect]
     Active Substance: RITUXIMAB
     Indication: Rheumatoid arthritis
     Route: 042
  2. RITUXIMAB [Suspect]
     Active Substance: RITUXIMAB
     Route: 042
  3. PROLIA [Suspect]
     Active Substance: DENOSUMAB
     Indication: Product used for unknown indication
     Dosage: PRE-FILLED SYRINGE. PRESERVATIVE-FREE.
     Route: 058
  4. DIAZEPAM [Concomitant]
     Active Substance: DIAZEPAM
  5. FOLIC ACID [Concomitant]
     Active Substance: FOLIC ACID
  6. FOSAMAX [Concomitant]
     Active Substance: ALENDRONATE SODIUM
  7. LORAZEPAM [Concomitant]
     Active Substance: LORAZEPAM
     Route: 065
  8. MELOXICAM [Concomitant]
     Active Substance: MELOXICAM
  9. METHOTREXATE [Concomitant]
     Active Substance: METHOTREXATE
     Route: 048
  10. MIRTAZAPINE [Concomitant]
     Active Substance: MIRTAZAPINE
  11. OMEPRAZOLE [Concomitant]
     Active Substance: OMEPRAZOLE
  12. TYLENOL [Concomitant]
     Active Substance: ACETAMINOPHEN
     Indication: Arthritis
  13. VANCOMYCIN [Concomitant]
     Active Substance: VANCOMYCIN
  14. ROMOSOZUMAB [Concomitant]
     Active Substance: ROMOSOZUMAB

REACTIONS (4)
  - Osteonecrosis of jaw [Unknown]
  - Purulence [Unknown]
  - Swelling face [Unknown]
  - Tooth infection [Unknown]
